FAERS Safety Report 20206268 (Version 3)
Quarter: 2022Q1

REPORT INFORMATION
  Report Type: Report from Study
  Country: US (occurrence: US)
  Receive Date: 20211220
  Receipt Date: 20220225
  Transmission Date: 20220423
  Serious: No
  Sender: FDA-Public Use
  Company Number: US-ABBVIE-21K-163-4202570-00

PATIENT
  Sex: Male

DRUGS (1)
  1. IMBRUVICA [Suspect]
     Active Substance: IBRUTINIB
     Indication: Product used for unknown indication
     Route: 048

REACTIONS (4)
  - Bleeding time prolonged [Not Recovered/Not Resolved]
  - Skin laceration [Unknown]
  - Wound haemorrhage [Unknown]
  - Petechiae [Not Recovered/Not Resolved]
